FAERS Safety Report 5070244-7 (Version None)
Quarter: 2006Q3

REPORT INFORMATION
  Report Type: 
  Country: None (occurrence: None)
  Receive Date: 20060803
  Receipt Date: 20060727
  Transmission Date: 20061208
  Serious: Yes (Other)
  Sender: FDA-Public Use
  Company Number: DE-MERCK-0607DEU00211

PATIENT
  Sex: Female

DRUGS (1)
  1. MAXALT [Suspect]
     Route: 065

REACTIONS (1)
  - SUICIDAL IDEATION [None]
